FAERS Safety Report 8225780-9 (Version None)
Quarter: 2012Q1

REPORT INFORMATION
  Report Type: 
  Country: None (occurrence: None)
  Receive Date: 20120321
  Receipt Date: 20120313
  Transmission Date: 20120608
  Serious: Yes (Other)
  Sender: FDA-Public Use
  Company Number: US-ELI_LILLY_AND_COMPANY-US201201001514

PATIENT
  Sex: Female
  Weight: 88.5 kg

DRUGS (1)
  1. HUMULIN R [Suspect]
     Dosage: UNK
     Dates: start: 19960101

REACTIONS (3)
  - COLON CANCER STAGE 0 [None]
  - ARTHRITIS [None]
  - METASTASES TO LIVER [None]
